FAERS Safety Report 4463431-X (Version None)
Quarter: 2004Q3

REPORT INFORMATION
  Report Type: 
  Country: None (occurrence: None)
  Receive Date: 20040928
  Receipt Date: 20040914
  Transmission Date: 20050211
  Serious: Yes (Death)
  Sender: FDA-Public Use
  Company Number: 800123

PATIENT
  Age: 66 Year
  Sex: Male
  Weight: 73.9363 kg

DRUGS (18)
  1. EXTRANEAL [Suspect]
     Indication: PERITONEAL DIALYSIS
     Dosage: 2 L; QD; INTRAPERITONEAL
     Route: 033
     Dates: start: 20040727, end: 20040907
  2. DIANEAL [Concomitant]
  3. NORVASC [Concomitant]
  4. LANOXIN [Concomitant]
  5. FOLIC ACID [Concomitant]
  6. MECLIZINE [Concomitant]
  7. FUROSEMIDE [Concomitant]
  8. ATENOLOL [Concomitant]
  9. TYLENOL W/ CODEINE NO. 3 [Concomitant]
  10. ACCUPRIL [Concomitant]
  11. LIPITOR [Concomitant]
  12. COLACE [Concomitant]
  13. NEPHROCAPS [Concomitant]
  14. TUMS [Concomitant]
  15. CALCITRIOL [Concomitant]
  16. PROTONIX [Concomitant]
  17. EPOGEN [Concomitant]
  18. EUTHROID [Concomitant]

REACTIONS (3)
  - BLOOD GLUCOSE INCREASED [None]
  - MYOCARDIAL INFARCTION [None]
  - RESPIRATORY DISORDER [None]
